FAERS Safety Report 25685851 (Version 2)
Quarter: 2025Q4

REPORT INFORMATION
  Report Type: Spontaneous
  Country: CA (occurrence: CA)
  Receive Date: 20250815
  Receipt Date: 20251021
  Transmission Date: 20260117
  Serious: Yes (Life-Threatening, Hospitalization, Disabling, Other)
  Sender: BRISTOL-MYERS SQUIBB COMPANY
  Company Number: CA-BRISTOL-MYERS SQUIBB COMPANY-2025-110999

PATIENT
  Age: 43 Year
  Sex: Female
  Weight: 70 kg

DRUGS (411)
  1. ORENCIA [Suspect]
     Active Substance: ABATACEPT
     Indication: Rheumatoid arthritis
  2. TRIAMCINOLONE ACETONIDE [Suspect]
     Active Substance: TRIAMCINOLONE ACETONIDE
     Indication: Rheumatoid arthritis
  3. TRIAMCINOLONE ACETONIDE [Suspect]
     Active Substance: TRIAMCINOLONE ACETONIDE
  4. TRIAMCINOLONE ACETONIDE [Suspect]
     Active Substance: TRIAMCINOLONE ACETONIDE
     Dosage: SUBDERMAL
  5. TRIAMCINOLONE ACETONIDE [Suspect]
     Active Substance: TRIAMCINOLONE ACETONIDE
  6. TRIAMCINOLONE ACETONIDE [Suspect]
     Active Substance: TRIAMCINOLONE ACETONIDE
  7. ACETAMINOPHEN [Concomitant]
     Active Substance: ACETAMINOPHEN
     Indication: Rheumatoid arthritis
  8. ACETAMINOPHEN\OXYCODONE HYDROCHLORIDE [Concomitant]
     Active Substance: ACETAMINOPHEN\OXYCODONE HYDROCHLORIDE
     Indication: Product used for unknown indication
  9. ACTEMRA [Concomitant]
     Active Substance: TOCILIZUMAB
     Indication: Rheumatoid arthritis
  10. ACTEMRA [Concomitant]
     Active Substance: TOCILIZUMAB
     Indication: Psoriatic arthropathy
  11. ACTEMRA [Concomitant]
     Active Substance: TOCILIZUMAB
     Indication: Colitis ulcerative
  12. AIMOVIG [Concomitant]
     Active Substance: ERENUMAB-AOOE
     Indication: Migraine
     Dosage: SUBDERMAL
  13. ALENDRONATE SODIUM\CHOLECALCIFEROL [Concomitant]
     Active Substance: ALENDRONATE SODIUM\CHOLECALCIFEROL
     Indication: Rheumatoid arthritis
  14. ALENDRONIC ACID [Concomitant]
     Active Substance: ALENDRONIC ACID
     Indication: Rheumatoid arthritis
  15. ALENDRONIC ACID [Concomitant]
     Active Substance: ALENDRONIC ACID
  16. ALENDRONIC ACID [Concomitant]
     Active Substance: ALENDRONIC ACID
  17. ALENDRONIC ACID [Concomitant]
     Active Substance: ALENDRONIC ACID
  18. ALENDRONIC ACID [Concomitant]
     Active Substance: ALENDRONIC ACID
     Dosage: SUDERMAL
  19. ALENDRONIC ACID [Concomitant]
     Active Substance: ALENDRONIC ACID
  20. PANTOPRAZOLE SODIUM ANHYDROUS [Concomitant]
     Active Substance: PANTOPRAZOLE SODIUM ANHYDROUS
     Indication: Product used for unknown indication
  21. PANTOPRAZOLE SODIUM ANHYDROUS [Concomitant]
     Active Substance: PANTOPRAZOLE SODIUM ANHYDROUS
  22. PREDNISONE [Concomitant]
     Active Substance: PREDNISONE
     Indication: Rheumatoid arthritis
  23. ARAVA [Concomitant]
     Active Substance: LEFLUNOMIDE
     Indication: Rheumatoid arthritis
  24. ARAVA [Concomitant]
     Active Substance: LEFLUNOMIDE
     Indication: Condition aggravated
  25. ASACOL [Concomitant]
     Active Substance: MESALAMINE
     Indication: Product used for unknown indication
  26. BORAGE OIL [Concomitant]
     Active Substance: BORAGE OIL
     Indication: Rheumatoid arthritis
  27. CAFFEINE CITRATE [Concomitant]
     Active Substance: CAFFEINE CITRATE
     Indication: Rheumatoid arthritis
  28. CALCIUM [Concomitant]
     Active Substance: CALCIUM
     Indication: Product used for unknown indication
  29. CALCIUM GLUBIONATE [Concomitant]
     Active Substance: CALCIUM GLUBIONATE
     Indication: Product used for unknown indication
  30. CALCIUM GLUBIONATE [Concomitant]
     Active Substance: CALCIUM GLUBIONATE
  31. CALCIUM\VITAMIN D [Concomitant]
     Active Substance: CALCIUM\VITAMIN D
     Indication: Product used for unknown indication
  32. CALCIUM\VITAMIN D [Concomitant]
     Active Substance: CALCIUM\VITAMIN D
  33. CELEBREX [Concomitant]
     Active Substance: CELECOXIB
     Indication: Rheumatoid arthritis
  34. CELEBREX [Concomitant]
     Active Substance: CELECOXIB
     Indication: Off label use
  35. CELEBREX [Concomitant]
     Active Substance: CELECOXIB
     Indication: Arthritis
  36. CELEBREX [Concomitant]
     Active Substance: CELECOXIB
  37. CELEBREX [Concomitant]
     Active Substance: CELECOXIB
  38. CELEBREX [Concomitant]
     Active Substance: CELECOXIB
  39. CELEBREX [Concomitant]
     Active Substance: CELECOXIB
  40. CELEBREX [Concomitant]
     Active Substance: CELECOXIB
  41. CELEBREX [Concomitant]
     Active Substance: CELECOXIB
  42. CELEBREX [Concomitant]
     Active Substance: CELECOXIB
  43. CELEBREX [Concomitant]
     Active Substance: CELECOXIB
  44. CELEBREX [Concomitant]
     Active Substance: CELECOXIB
  45. CELEBREX [Concomitant]
     Active Substance: CELECOXIB
  46. CELEBREX [Concomitant]
     Active Substance: CELECOXIB
  47. CELEBREX [Concomitant]
     Active Substance: CELECOXIB
  48. CELEBREX [Concomitant]
     Active Substance: CELECOXIB
  49. CELEBREX [Concomitant]
     Active Substance: CELECOXIB
  50. CELEBREX [Concomitant]
     Active Substance: CELECOXIB
  51. CELECOXIB [Concomitant]
     Active Substance: CELECOXIB
     Indication: Rheumatoid arthritis
  52. CELECOXIB [Concomitant]
     Active Substance: CELECOXIB
     Indication: Off label use
  53. CELECOXIB [Concomitant]
     Active Substance: CELECOXIB
     Indication: Arthritis
  54. CELECOXIB [Concomitant]
     Active Substance: CELECOXIB
  55. CELECOXIB [Concomitant]
     Active Substance: CELECOXIB
  56. CELECOXIB [Concomitant]
     Active Substance: CELECOXIB
  57. CELECOXIB [Concomitant]
     Active Substance: CELECOXIB
  58. CELECOXIB [Concomitant]
     Active Substance: CELECOXIB
  59. CELECOXIB [Concomitant]
     Active Substance: CELECOXIB
  60. CELECOXIB [Concomitant]
     Active Substance: CELECOXIB
  61. CELECOXIB [Concomitant]
     Active Substance: CELECOXIB
  62. CELECOXIB [Concomitant]
     Active Substance: CELECOXIB
  63. CELECOXIB [Concomitant]
     Active Substance: CELECOXIB
  64. CELECOXIB [Concomitant]
     Active Substance: CELECOXIB
  65. CERTOLIZUMAB PEGOL [Concomitant]
     Active Substance: CERTOLIZUMAB PEGOL
     Indication: Rheumatoid arthritis
     Dosage: SUBDERMAL
  66. CERTOLIZUMAB PEGOL [Concomitant]
     Active Substance: CERTOLIZUMAB PEGOL
     Dosage: SUBDERMAL
  67. CETIRIZINE [Concomitant]
     Active Substance: CETIRIZINE HYDROCHLORIDE
     Indication: Rheumatoid arthritis
  68. CETIRIZINE [Concomitant]
     Active Substance: CETIRIZINE HYDROCHLORIDE
     Indication: Off label use
  69. CETIRIZINE [Concomitant]
     Active Substance: CETIRIZINE HYDROCHLORIDE
  70. CETIRIZINE [Concomitant]
     Active Substance: CETIRIZINE HYDROCHLORIDE
  71. CETIRIZINE [Concomitant]
     Active Substance: CETIRIZINE HYDROCHLORIDE
  72. CETIRIZINE [Concomitant]
     Active Substance: CETIRIZINE HYDROCHLORIDE
  73. CETIRIZINE [Concomitant]
     Active Substance: CETIRIZINE HYDROCHLORIDE
  74. CETIRIZINE [Concomitant]
     Active Substance: CETIRIZINE HYDROCHLORIDE
  75. CETIRIZINE [Concomitant]
     Active Substance: CETIRIZINE HYDROCHLORIDE
  76. CETIRIZINE HYDROCHLORIDE [Concomitant]
     Active Substance: CETIRIZINE HYDROCHLORIDE
     Indication: Rheumatoid arthritis
  77. CETIRIZINE HYDROCHLORIDE [Concomitant]
     Active Substance: CETIRIZINE HYDROCHLORIDE
  78. CETIRIZINE HYDROCHLORIDE [Concomitant]
     Active Substance: CETIRIZINE HYDROCHLORIDE
  79. CETIRIZINE HYDROCHLORIDE [Concomitant]
     Active Substance: CETIRIZINE HYDROCHLORIDE
  80. CETIRIZINE HYDROCHLORIDE [Concomitant]
     Active Substance: CETIRIZINE HYDROCHLORIDE
  81. CETIRIZINE HYDROCHLORIDE AND PSEUDOEPHEDRINE HYDROCHLORIDE [Concomitant]
     Active Substance: CETIRIZINE HYDROCHLORIDE\PSEUDOEPHEDRINE HYDROCHLORIDE
     Indication: Rheumatoid arthritis
  82. CETIRIZINE HYDROCHLORIDE AND PSEUDOEPHEDRINE HYDROCHLORIDE [Concomitant]
     Active Substance: CETIRIZINE HYDROCHLORIDE\PSEUDOEPHEDRINE HYDROCHLORIDE
  83. CETRIMIDE [Concomitant]
     Active Substance: CETRIMIDE
     Indication: Rheumatoid arthritis
  84. CHLORAPREP [Concomitant]
     Active Substance: CHLORHEXIDINE GLUCONATE\ISOPROPYL ALCOHOL
     Indication: Rheumatoid arthritis
  85. CHLORHEXIDINE [Concomitant]
     Active Substance: CHLORHEXIDINE
     Indication: Rheumatoid arthritis
  86. CHLORHEXIDINE GLUCONATE\ISOPROPYL ALCOHOL [Concomitant]
     Active Substance: CHLORHEXIDINE GLUCONATE\ISOPROPYL ALCOHOL
     Indication: Product used for unknown indication
  87. CHLORHEXIDINE GLUCONATE\ISOPROPYL ALCOHOL [Concomitant]
     Active Substance: CHLORHEXIDINE GLUCONATE\ISOPROPYL ALCOHOL
  88. CHLORHEXIDINE GLUCONATE\ISOPROPYL ALCOHOL [Concomitant]
     Active Substance: CHLORHEXIDINE GLUCONATE\ISOPROPYL ALCOHOL
  89. CIMZIA [Concomitant]
     Active Substance: CERTOLIZUMAB PEGOL
     Indication: Rheumatoid arthritis
  90. CORTISONE (HYDROCORTISONE) [Concomitant]
     Active Substance: HYDROCORTISONE
     Indication: Rheumatoid arthritis
  91. CORTISONE (HYDROCORTISONE) [Concomitant]
     Active Substance: HYDROCORTISONE
  92. CORTISONE (HYDROCORTISONE) [Concomitant]
     Active Substance: HYDROCORTISONE
  93. CORTISONE (HYDROCORTISONE) [Concomitant]
     Active Substance: HYDROCORTISONE
     Dosage: SUBDERMAL
  94. CORTISONE (HYDROCORTISONE) [Concomitant]
     Active Substance: HYDROCORTISONE
  95. CORTISONE ACETATE [Concomitant]
     Active Substance: CORTISONE ACETATE
     Indication: Rheumatoid arthritis
  96. CORTISONE ACETATE [Concomitant]
     Active Substance: CORTISONE ACETATE
  97. CORTISONE ACETATE [Concomitant]
     Active Substance: CORTISONE ACETATE
  98. CORTISONE ACETATE [Concomitant]
     Active Substance: CORTISONE ACETATE
  99. CORTISONE ACETATE [Concomitant]
     Active Substance: CORTISONE ACETATE
  100. COSENTYX [Concomitant]
     Active Substance: SECUKINUMAB
     Indication: Rheumatoid arthritis
  101. COSENTYX [Concomitant]
     Active Substance: SECUKINUMAB
     Indication: Psoriatic arthropathy
  102. DESOXIMETASONE [Concomitant]
     Active Substance: DESOXIMETASONE
     Indication: Rheumatoid arthritis
     Dosage: SUBDERMAL
  103. DESOXIMETASONE [Concomitant]
     Active Substance: DESOXIMETASONE
  104. DESOXIMETASONE [Concomitant]
     Active Substance: DESOXIMETASONE
  105. DESOXIMETASONE [Concomitant]
     Active Substance: DESOXIMETASONE
  106. DESOXIMETASONE [Concomitant]
     Active Substance: DESOXIMETASONE
  107. DESOXIMETASONE [Concomitant]
     Active Substance: DESOXIMETASONE
  108. DESOXIMETASONE [Concomitant]
     Active Substance: DESOXIMETASONE
  109. DESOXIMETASONE [Concomitant]
     Active Substance: DESOXIMETASONE
  110. DESOXIMETASONE [Concomitant]
     Active Substance: DESOXIMETASONE
  111. DESOXIMETASONE [Concomitant]
     Active Substance: DESOXIMETASONE
     Dosage: SUBDERMAL
  112. DESOXIMETASONE [Concomitant]
     Active Substance: DESOXIMETASONE
  113. DESOXIMETASONE [Concomitant]
     Active Substance: DESOXIMETASONE
  114. DESOXIMETASONE [Concomitant]
     Active Substance: DESOXIMETASONE
  115. DESOXIMETASONE [Concomitant]
     Active Substance: DESOXIMETASONE
  116. DESOXIMETASONE [Concomitant]
     Active Substance: DESOXIMETASONE
  117. DESOXIMETASONE [Concomitant]
     Active Substance: DESOXIMETASONE
  118. DESOXIMETASONE [Concomitant]
     Active Substance: DESOXIMETASONE
  119. DESOXIMETASONE [Concomitant]
     Active Substance: DESOXIMETASONE
  120. DESOXIMETASONE [Concomitant]
     Active Substance: DESOXIMETASONE
  121. DICLOFENAC [Concomitant]
     Active Substance: DICLOFENAC
     Indication: Product used for unknown indication
  122. DICLOFENAC [Concomitant]
     Active Substance: DICLOFENAC
  123. DICLOFENAC POTASSIUM [Concomitant]
     Active Substance: DICLOFENAC POTASSIUM
     Indication: Product used for unknown indication
  124. DICLOFENAC POTASSIUM [Concomitant]
     Active Substance: DICLOFENAC POTASSIUM
  125. DOXYCYCLINE HYCLATE [Concomitant]
     Active Substance: DOXYCYCLINE HYCLATE
     Indication: Rheumatoid arthritis
  126. DOXYCYCLINE HYCLATE [Concomitant]
     Active Substance: DOXYCYCLINE HYCLATE
  127. DOXYCYCLINE HYCLATE [Concomitant]
     Active Substance: DOXYCYCLINE HYCLATE
     Dosage: SUBDERMAL
  128. ENBREL [Concomitant]
     Active Substance: ETANERCEPT
     Indication: Rheumatoid arthritis
  129. ERELZI [Concomitant]
     Active Substance: ETANERCEPT-SZZS
     Indication: Rheumatoid arthritis
     Dosage: SUBDERMAL
  130. ERELZI [Concomitant]
     Active Substance: ETANERCEPT-SZZS
  131. ERELZI [Concomitant]
     Active Substance: ETANERCEPT-SZZS
  132. FLUMETHASONE PIVALATE [Concomitant]
     Active Substance: FLUMETHASONE PIVALATE
     Indication: Rheumatoid arthritis
  133. FOLIC ACID [Concomitant]
     Active Substance: FOLIC ACID
     Indication: Rheumatoid arthritis
  134. FOLIC ACID [Concomitant]
     Active Substance: FOLIC ACID
     Indication: Psoriatic arthropathy
  135. FOLIC ACID [Concomitant]
     Active Substance: FOLIC ACID
  136. FOLIC ACID [Concomitant]
     Active Substance: FOLIC ACID
  137. FOLIC ACID [Concomitant]
     Active Substance: FOLIC ACID
  138. FOLIC ACID [Concomitant]
     Active Substance: FOLIC ACID
  139. FOLIC ACID [Concomitant]
     Active Substance: FOLIC ACID
  140. FOLIC ACID [Concomitant]
     Active Substance: FOLIC ACID
  141. FOLIC ACID [Concomitant]
     Active Substance: FOLIC ACID
  142. FOLIC ACID [Concomitant]
     Active Substance: FOLIC ACID
  143. FOLIC ACID [Concomitant]
     Active Substance: FOLIC ACID
  144. FOLIC ACID [Concomitant]
     Active Substance: FOLIC ACID
  145. FOLIC ACID [Concomitant]
     Active Substance: FOLIC ACID
  146. FOLIC ACID [Concomitant]
     Active Substance: FOLIC ACID
  147. FOLIC ACID [Concomitant]
     Active Substance: FOLIC ACID
  148. FOSAMAX [Concomitant]
     Active Substance: ALENDRONATE SODIUM
     Indication: Rheumatoid arthritis
  149. FOSAMAX [Concomitant]
     Active Substance: ALENDRONATE SODIUM
     Dosage: SUBDERMAL
  150. FOSAMAX [Concomitant]
     Active Substance: ALENDRONATE SODIUM
  151. FOSAMAX [Concomitant]
     Active Substance: ALENDRONATE SODIUM
  152. FOSAMAX [Concomitant]
     Active Substance: ALENDRONATE SODIUM
  153. FOSAMAX [Concomitant]
     Active Substance: ALENDRONATE SODIUM
  154. FOSAMAX [Concomitant]
     Active Substance: ALENDRONATE SODIUM
  155. GOLIMUMAB [Concomitant]
     Active Substance: GOLIMUMAB
     Indication: Rheumatoid arthritis
  156. HUMIRA [Concomitant]
     Active Substance: ADALIMUMAB
     Indication: Rheumatoid arthritis
     Dosage: SOLUTION SUBCUTANEOUS
  157. HYDROCORTISONE [Concomitant]
     Active Substance: HYDROCORTISONE
     Indication: Rheumatoid arthritis
  158. HYDROCORTISONE [Concomitant]
     Active Substance: HYDROCORTISONE
     Dosage: SUBDERMAL
  159. HYDROCORTISONE [Concomitant]
     Active Substance: HYDROCORTISONE
  160. HYDROCORTISONE [Concomitant]
     Active Substance: HYDROCORTISONE
  161. HYDROCORTISONE BUTYRATE [Concomitant]
     Active Substance: HYDROCORTISONE BUTYRATE
     Indication: Rheumatoid arthritis
  162. HYDROXYCHLOROQUINE [Concomitant]
     Active Substance: HYDROXYCHLOROQUINE
     Indication: Systemic lupus erythematosus
     Dosage: SUBDERMAL
  163. HYDROXYCHLOROQUINE [Concomitant]
     Active Substance: HYDROXYCHLOROQUINE
     Indication: Rheumatoid arthritis
  164. HYDROXYCHLOROQUINE [Concomitant]
     Active Substance: HYDROXYCHLOROQUINE
  165. HYDROXYCHLOROQUINE [Concomitant]
     Active Substance: HYDROXYCHLOROQUINE
  166. HYDROXYCHLOROQUINE [Concomitant]
     Active Substance: HYDROXYCHLOROQUINE
  167. HYDROXYCHLOROQUINE [Concomitant]
     Active Substance: HYDROXYCHLOROQUINE
  168. HYDROXYCHLOROQUINE [Concomitant]
     Active Substance: HYDROXYCHLOROQUINE
  169. HYDROXYCHLOROQUINE [Concomitant]
     Active Substance: HYDROXYCHLOROQUINE
  170. HYDROXYCHLOROQUINE [Concomitant]
     Active Substance: HYDROXYCHLOROQUINE
  171. HYDROXYCHLOROQUINE [Concomitant]
     Active Substance: HYDROXYCHLOROQUINE
  172. HYDROXYCHLOROQUINE [Concomitant]
     Active Substance: HYDROXYCHLOROQUINE
  173. HYDROXYCHLOROQUINE [Concomitant]
     Active Substance: HYDROXYCHLOROQUINE
  174. HYDROXYCHLOROQUINE [Concomitant]
     Active Substance: HYDROXYCHLOROQUINE
  175. HYDROXYCHLOROQUINE [Concomitant]
     Active Substance: HYDROXYCHLOROQUINE
  176. HYDROXYCHLOROQUINE [Concomitant]
     Active Substance: HYDROXYCHLOROQUINE
  177. HYDROXYCHLOROQUINE SULFATE [Concomitant]
     Active Substance: HYDROXYCHLOROQUINE SULFATE
     Indication: Systemic lupus erythematosus
  178. HYDROXYCHLOROQUINE SULFATE [Concomitant]
     Active Substance: HYDROXYCHLOROQUINE SULFATE
     Indication: Rheumatoid arthritis
  179. HYDROXYCHLOROQUINE SULFATE [Concomitant]
     Active Substance: HYDROXYCHLOROQUINE SULFATE
  180. HYDROXYCHLOROQUINE SULFATE [Concomitant]
     Active Substance: HYDROXYCHLOROQUINE SULFATE
  181. HYDROXYCHLOROQUINE SULFATE [Concomitant]
     Active Substance: HYDROXYCHLOROQUINE SULFATE
  182. HYDROXYCHLOROQUINE SULFATE [Concomitant]
     Active Substance: HYDROXYCHLOROQUINE SULFATE
     Dosage: OTHER
  183. HYDROXYCHLOROQUINE SULFATE [Concomitant]
     Active Substance: HYDROXYCHLOROQUINE SULFATE
  184. HYDROXYCHLOROQUINE SULFATE [Concomitant]
     Active Substance: HYDROXYCHLOROQUINE SULFATE
  185. HYDROXYCHLOROQUINE SULFATE [Concomitant]
     Active Substance: HYDROXYCHLOROQUINE SULFATE
  186. HYDROXYCHLOROQUINE SULFATE [Concomitant]
     Active Substance: HYDROXYCHLOROQUINE SULFATE
  187. HYDROXYCHLOROQUINE SULFATE [Concomitant]
     Active Substance: HYDROXYCHLOROQUINE SULFATE
  188. HYDROXYCHLOROQUINE SULFATE [Concomitant]
     Active Substance: HYDROXYCHLOROQUINE SULFATE
     Dosage: SUBDERMAL
  189. HYDROXYCHLOROQUINE SULFATE [Concomitant]
     Active Substance: HYDROXYCHLOROQUINE SULFATE
  190. HYDROXYCHLOROQUINE SULFATE [Concomitant]
     Active Substance: HYDROXYCHLOROQUINE SULFATE
  191. HYRIMOZ [Concomitant]
     Active Substance: ADALIMUMAB-ADAZ
     Indication: Rheumatoid arthritis
  192. HYRIMOZ [Concomitant]
     Active Substance: ADALIMUMAB-ADAZ
     Indication: Psoriatic arthropathy
     Dosage: SUBDERMAL
  193. HYRIMOZ [Concomitant]
     Active Substance: ADALIMUMAB-ADAZ
  194. HYRIMOZ [Concomitant]
     Active Substance: ADALIMUMAB-ADAZ
     Dosage: SUBDERMAL
  195. IBUPROFEN [Concomitant]
     Active Substance: IBUPROFEN
     Indication: Product used for unknown indication
  196. INFLIXIMAB [Concomitant]
     Active Substance: INFLIXIMAB
     Indication: Rheumatoid arthritis
  197. INFLIXIMAB [Concomitant]
     Active Substance: INFLIXIMAB
     Indication: Psoriatic arthropathy
  198. INFLIXIMAB [Concomitant]
     Active Substance: INFLIXIMAB
     Indication: Colitis ulcerative
  199. INFLIXIMAB [Concomitant]
     Active Substance: INFLIXIMAB
  200. ISOPROPYL ALCOHOL [Concomitant]
     Active Substance: ISOPROPYL ALCOHOL
     Indication: Product used for unknown indication
  201. KEVZARA [Concomitant]
     Active Substance: SARILUMAB
     Indication: Rheumatoid arthritis
  202. KEVZARA [Concomitant]
     Active Substance: SARILUMAB
  203. LISINOPRIL [Concomitant]
     Active Substance: LISINOPRIL
     Indication: Product used for unknown indication
  204. LISINOPRIL [Concomitant]
     Active Substance: LISINOPRIL
  205. METHOTREXATE [Concomitant]
     Active Substance: METHOTREXATE
     Indication: Rheumatoid arthritis
     Dosage: SUBDERMAL
  206. METHOTREXATE [Concomitant]
     Active Substance: METHOTREXATE
  207. METHOTREXATE [Concomitant]
     Active Substance: METHOTREXATE
  208. METHOTREXATE [Concomitant]
     Active Substance: METHOTREXATE
  209. METHOTREXATE [Concomitant]
     Active Substance: METHOTREXATE
  210. METHOTREXATE [Concomitant]
     Active Substance: METHOTREXATE
  211. METHOTREXATE [Concomitant]
     Active Substance: METHOTREXATE
     Dosage: SUBDERMAL
  212. METHOTREXATE [Concomitant]
     Active Substance: METHOTREXATE
  213. METHOTREXATE [Concomitant]
     Active Substance: METHOTREXATE
  214. METHOTREXATE [Concomitant]
     Active Substance: METHOTREXATE
  215. METHOTREXATE [Concomitant]
     Active Substance: METHOTREXATE
  216. METHOTREXATE [Concomitant]
     Active Substance: METHOTREXATE
  217. METHOTREXATE [Concomitant]
     Active Substance: METHOTREXATE
  218. METHOTREXATE [Concomitant]
     Active Substance: METHOTREXATE
  219. METHOTREXATE [Concomitant]
     Active Substance: METHOTREXATE
  220. METHOTREXATE [Concomitant]
     Active Substance: METHOTREXATE
  221. METHOTREXATE [Concomitant]
     Active Substance: METHOTREXATE
  222. METHOTREXATE [Concomitant]
     Active Substance: METHOTREXATE
  223. METHOTREXATE [Concomitant]
     Active Substance: METHOTREXATE
     Dosage: SUBDERMAL
  224. METHOTREXATE [Concomitant]
     Active Substance: METHOTREXATE
  225. METHOTREXATE [Concomitant]
     Active Substance: METHOTREXATE
  226. METHOTREXATE [Concomitant]
     Active Substance: METHOTREXATE
  227. METHOTREXATE [Concomitant]
     Active Substance: METHOTREXATE
  228. METHOTREXATE [Concomitant]
     Active Substance: METHOTREXATE
  229. METHOTREXATE [Concomitant]
     Active Substance: METHOTREXATE
  230. METHOTREXATE [Concomitant]
     Active Substance: METHOTREXATE
     Dosage: SUBDERMAL
  231. NAPROXEN SODIUM [Concomitant]
     Active Substance: NAPROXEN SODIUM
     Indication: Rheumatoid arthritis
  232. NAPROXEN SODIUM [Concomitant]
     Active Substance: NAPROXEN SODIUM
     Indication: Headache
  233. NAPROXEN SODIUM [Concomitant]
     Active Substance: NAPROXEN SODIUM
  234. NAPROXEN SODIUM [Concomitant]
     Active Substance: NAPROXEN SODIUM
  235. OTEZLA [Concomitant]
     Active Substance: APREMILAST
     Indication: Rheumatoid arthritis
  236. OXYCODONE [Concomitant]
     Active Substance: OXYCODONE
     Indication: Product used for unknown indication
  237. OXYCODONE [Concomitant]
     Active Substance: OXYCODONE
  238. OXYCODONE [Concomitant]
     Active Substance: OXYCODONE
  239. OXYCODONE TEREPHTHALATE [Concomitant]
     Active Substance: OXYCODONE TEREPHTHALATE
     Indication: Rheumatoid arthritis
  240. PERIOGARD [Concomitant]
     Active Substance: CHLORHEXIDINE GLUCONATE
     Indication: Product used for unknown indication
  241. PERIOGARD [Concomitant]
     Active Substance: CHLORHEXIDINE GLUCONATE
  242. PHTHALYLSULFATHIAZOLE [Concomitant]
     Active Substance: PHTHALYLSULFATHIAZOLE
     Indication: Rheumatoid arthritis
     Dosage: SUBDERMAL
  243. PHTHALYLSULFATHIAZOLE [Concomitant]
     Active Substance: PHTHALYLSULFATHIAZOLE
  244. PHTHALYLSULFATHIAZOLE [Concomitant]
     Active Substance: PHTHALYLSULFATHIAZOLE
  245. PHTHALYLSULFATHIAZOLE [Concomitant]
     Active Substance: PHTHALYLSULFATHIAZOLE
  246. PHTHALYLSULFATHIAZOLE [Concomitant]
     Active Substance: PHTHALYLSULFATHIAZOLE
  247. PHTHALYLSULFATHIAZOLE [Concomitant]
     Active Substance: PHTHALYLSULFATHIAZOLE
  248. PHTHALYLSULFATHIAZOLE [Concomitant]
     Active Substance: PHTHALYLSULFATHIAZOLE
  249. PHTHALYLSULFATHIAZOLE [Concomitant]
     Active Substance: PHTHALYLSULFATHIAZOLE
  250. PHTHALYLSULFATHIAZOLE [Concomitant]
     Active Substance: PHTHALYLSULFATHIAZOLE
  251. PHTHALYLSULFATHIAZOLE [Concomitant]
     Active Substance: PHTHALYLSULFATHIAZOLE
  252. PHTHALYLSULFATHIAZOLE [Concomitant]
     Active Substance: PHTHALYLSULFATHIAZOLE
  253. PHTHALYLSULFATHIAZOLE [Concomitant]
     Active Substance: PHTHALYLSULFATHIAZOLE
  254. PHTHALYLSULFATHIAZOLE [Concomitant]
     Active Substance: PHTHALYLSULFATHIAZOLE
  255. PHTHALYLSULFATHIAZOLE [Concomitant]
     Active Substance: PHTHALYLSULFATHIAZOLE
  256. PHTHALYLSULFATHIAZOLE [Concomitant]
     Active Substance: PHTHALYLSULFATHIAZOLE
  257. HYDROXYCHLOROQUINE DIPHOSPHATE [Concomitant]
     Active Substance: HYDROXYCHLOROQUINE DIPHOSPHATE
     Indication: Rheumatoid arthritis
  258. HYDROXYCHLOROQUINE DIPHOSPHATE [Concomitant]
     Active Substance: HYDROXYCHLOROQUINE DIPHOSPHATE
     Indication: Condition aggravated
  259. PREDNISOLONE ACETATE [Concomitant]
     Active Substance: PREDNISOLONE ACETATE
     Indication: Product used for unknown indication
  260. PREDNISONE [Concomitant]
     Active Substance: PREDNISONE
     Indication: Rheumatoid arthritis
  261. PREDNISONE [Concomitant]
     Active Substance: PREDNISONE
     Indication: Psoriatic arthropathy
  262. PREDNISONE [Concomitant]
     Active Substance: PREDNISONE
     Indication: Condition aggravated
  263. PREDNISONE [Concomitant]
     Active Substance: PREDNISONE
     Indication: Arthralgia
  264. PREDNISONE [Concomitant]
     Active Substance: PREDNISONE
  265. PREDNISONE [Concomitant]
     Active Substance: PREDNISONE
  266. PREDNISONE [Concomitant]
     Active Substance: PREDNISONE
  267. PREDNISONE [Concomitant]
     Active Substance: PREDNISONE
  268. PREDNISONE [Concomitant]
     Active Substance: PREDNISONE
  269. PREDNISONE [Concomitant]
     Active Substance: PREDNISONE
  270. PREDNISONE [Concomitant]
     Active Substance: PREDNISONE
  271. PREDNISONE [Concomitant]
     Active Substance: PREDNISONE
  272. PREDNISONE [Concomitant]
     Active Substance: PREDNISONE
  273. PREDNISONE [Concomitant]
     Active Substance: PREDNISONE
  274. PREGABALIN [Concomitant]
     Active Substance: PREGABALIN
     Indication: Rheumatoid arthritis
  275. PSEUDOEPHEDRINE HYDROCHLORIDE [Concomitant]
     Active Substance: PSEUDOEPHEDRINE HYDROCHLORIDE
     Indication: Rheumatoid arthritis
  276. PSEUDOEPHEDRINE HYDROCHLORIDE [Concomitant]
     Active Substance: PSEUDOEPHEDRINE HYDROCHLORIDE
  277. PSEUDOEPHEDRINE HYDROCHLORIDE [Concomitant]
     Active Substance: PSEUDOEPHEDRINE HYDROCHLORIDE
  278. RAMIPRIL [Concomitant]
     Active Substance: RAMIPRIL
     Indication: Product used for unknown indication
  279. RAMIPRIL [Concomitant]
     Active Substance: RAMIPRIL
  280. CETIRIZINE HYDROCHLORIDE\PSEUDOEPHEDRINE HYDROCHLORIDE [Concomitant]
     Active Substance: CETIRIZINE HYDROCHLORIDE\PSEUDOEPHEDRINE HYDROCHLORIDE
     Indication: Rheumatoid arthritis
  281. CETIRIZINE HYDROCHLORIDE\PSEUDOEPHEDRINE HYDROCHLORIDE [Concomitant]
     Active Substance: CETIRIZINE HYDROCHLORIDE\PSEUDOEPHEDRINE HYDROCHLORIDE
     Indication: Off label use
  282. CETIRIZINE HYDROCHLORIDE\PSEUDOEPHEDRINE HYDROCHLORIDE [Concomitant]
     Active Substance: CETIRIZINE HYDROCHLORIDE\PSEUDOEPHEDRINE HYDROCHLORIDE
  283. CETIRIZINE HYDROCHLORIDE\PSEUDOEPHEDRINE HYDROCHLORIDE [Concomitant]
     Active Substance: CETIRIZINE HYDROCHLORIDE\PSEUDOEPHEDRINE HYDROCHLORIDE
  284. CETIRIZINE HYDROCHLORIDE\PSEUDOEPHEDRINE HYDROCHLORIDE [Concomitant]
     Active Substance: CETIRIZINE HYDROCHLORIDE\PSEUDOEPHEDRINE HYDROCHLORIDE
  285. REMICADE [Concomitant]
     Active Substance: INFLIXIMAB
     Indication: Rheumatoid arthritis
  286. REMICADE [Concomitant]
     Active Substance: INFLIXIMAB
     Indication: Psoriatic arthropathy
  287. REMICADE [Concomitant]
     Active Substance: INFLIXIMAB
     Indication: Psoriasis
  288. REMICADE [Concomitant]
     Active Substance: INFLIXIMAB
     Indication: Crohn^s disease
  289. REMICADE [Concomitant]
     Active Substance: INFLIXIMAB
     Indication: Ankylosing spondylitis
  290. REMICADE [Concomitant]
     Active Substance: INFLIXIMAB
  291. REMICADE [Concomitant]
     Active Substance: INFLIXIMAB
  292. REMICADE [Concomitant]
     Active Substance: INFLIXIMAB
  293. REMICADE [Concomitant]
     Active Substance: INFLIXIMAB
  294. RITUXIMAB [Concomitant]
     Active Substance: RITUXIMAB
     Indication: Rheumatoid arthritis
  295. RITUXIMAB [Concomitant]
     Active Substance: RITUXIMAB
  296. RITUXIMAB [Concomitant]
     Active Substance: RITUXIMAB
  297. RITUXIMAB [Concomitant]
     Active Substance: RITUXIMAB
  298. RITUXIMAB [Concomitant]
     Active Substance: RITUXIMAB
     Dosage: SUBDERMAL
  299. RITUXIMAB [Concomitant]
     Active Substance: RITUXIMAB
  300. RITUXIMAB [Concomitant]
     Active Substance: RITUXIMAB
  301. RITUXIMAB [Concomitant]
     Active Substance: RITUXIMAB
  302. HYALURONIDASE (HUMAN RECOMBINANT)\RITUXIMAB [Concomitant]
     Active Substance: HYALURONIDASE (HUMAN RECOMBINANT)\RITUXIMAB
     Indication: Rheumatoid arthritis
  303. DIETARY SUPPLEMENT\HERBALS [Concomitant]
     Active Substance: DIETARY SUPPLEMENT\HERBALS
     Indication: Product used for unknown indication
  304. DIETARY SUPPLEMENT\HERBALS [Concomitant]
     Active Substance: DIETARY SUPPLEMENT\HERBALS
     Dosage: SUBDERMAL
  305. SULFASALAZINE [Concomitant]
     Active Substance: SULFASALAZINE
     Indication: Product used for unknown indication
  306. APREMILAST [Concomitant]
     Active Substance: APREMILAST
     Indication: Product used for unknown indication
  307. APREMILAST [Concomitant]
     Active Substance: APREMILAST
  308. APREMILAST [Concomitant]
     Active Substance: APREMILAST
  309. LEFLUNOMIDE [Concomitant]
     Active Substance: LEFLUNOMIDE
     Indication: Rheumatoid arthritis
  310. LEFLUNOMIDE [Concomitant]
     Active Substance: LEFLUNOMIDE
  311. LEFLUNOMIDE [Concomitant]
     Active Substance: LEFLUNOMIDE
  312. LEFLUNOMIDE [Concomitant]
     Active Substance: LEFLUNOMIDE
  313. LEFLUNOMIDE [Concomitant]
     Active Substance: LEFLUNOMIDE
  314. LEFLUNOMIDE [Concomitant]
     Active Substance: LEFLUNOMIDE
  315. LISINOPRIL [Concomitant]
     Active Substance: LISINOPRIL
     Indication: Product used for unknown indication
  316. MYCOPHENOLATE MOFETIL [Concomitant]
     Active Substance: MYCOPHENOLATE MOFETIL
     Indication: Rheumatoid arthritis
  317. MYCOPHENOLATE MOFETIL [Concomitant]
     Active Substance: MYCOPHENOLATE MOFETIL
  318. QUETIAPINE FUMARATE [Concomitant]
     Active Substance: QUETIAPINE FUMARATE
     Indication: Product used for unknown indication
  319. QUETIAPINE FUMARATE [Concomitant]
     Active Substance: QUETIAPINE FUMARATE
  320. SIMPONI [Concomitant]
     Active Substance: GOLIMUMAB
     Indication: Rheumatoid arthritis
     Dosage: SOLUTION?SUBCUTANEOUS
  321. SIMPONI [Concomitant]
     Active Substance: GOLIMUMAB
     Indication: Psoriatic arthropathy
  322. STELARA [Concomitant]
     Active Substance: USTEKINUMAB
     Indication: Rheumatoid arthritis
     Dosage: SOLUTION?SUBCUTANEOUS
  323. STELARA [Concomitant]
     Active Substance: USTEKINUMAB
     Indication: Psoriatic arthropathy
  324. STELARA [Concomitant]
     Active Substance: USTEKINUMAB
     Dosage: SUBDERMAL
  325. STELARA [Concomitant]
     Active Substance: USTEKINUMAB
     Dosage: SUBDERMAL
  326. STELARA [Concomitant]
     Active Substance: USTEKINUMAB
  327. SULFASALAZINE [Concomitant]
     Active Substance: SULFASALAZINE
     Indication: Product used for unknown indication
  328. SULFASALAZINE [Concomitant]
     Active Substance: SULFASALAZINE
  329. SULFASALAZINE [Concomitant]
     Active Substance: SULFASALAZINE
  330. SULFASALAZINE [Concomitant]
     Active Substance: SULFASALAZINE
  331. SULFASALAZINE [Concomitant]
     Active Substance: SULFASALAZINE
  332. SULFASALAZINE [Concomitant]
     Active Substance: SULFASALAZINE
  333. SULFASALAZINE [Concomitant]
     Active Substance: SULFASALAZINE
  334. SULFASALAZINE [Concomitant]
     Active Substance: SULFASALAZINE
  335. SULFASALAZINE [Concomitant]
     Active Substance: SULFASALAZINE
     Dosage: SUBDERMAL
  336. SULFASALAZINE [Concomitant]
     Active Substance: SULFASALAZINE
     Dosage: SUBDERMAL
  337. SULFASALAZINE [Concomitant]
     Active Substance: SULFASALAZINE
  338. SULFASALAZINE [Concomitant]
     Active Substance: SULFASALAZINE
  339. SULFASALAZINE [Concomitant]
     Active Substance: SULFASALAZINE
  340. SULFASALAZINE [Concomitant]
     Active Substance: SULFASALAZINE
  341. SULFASALAZINE [Concomitant]
     Active Substance: SULFASALAZINE
  342. SULFASALAZINE [Concomitant]
     Active Substance: SULFASALAZINE
  343. SULFASALAZINE [Concomitant]
     Active Substance: SULFASALAZINE
  344. SULFASALAZINE [Concomitant]
     Active Substance: SULFASALAZINE
     Dosage: SUBDERMAL
  345. SULFASALAZINE [Concomitant]
     Active Substance: SULFASALAZINE
  346. SULFASALAZINE [Concomitant]
     Active Substance: SULFASALAZINE
  347. SULFASALAZINE [Concomitant]
     Active Substance: SULFASALAZINE
  348. SULFASALAZINE [Concomitant]
     Active Substance: SULFASALAZINE
  349. SULFASALAZINE [Concomitant]
     Active Substance: SULFASALAZINE
  350. SULFASALAZINE [Concomitant]
     Active Substance: SULFASALAZINE
  351. SULFASALAZINE [Concomitant]
     Active Substance: SULFASALAZINE
  352. SULFASALAZINE [Concomitant]
     Active Substance: SULFASALAZINE
  353. SULFASALAZINE [Concomitant]
     Active Substance: SULFASALAZINE
  354. SULFASALAZINE [Concomitant]
     Active Substance: SULFASALAZINE
  355. SULFASALAZINE [Concomitant]
     Active Substance: SULFASALAZINE
     Dosage: SUBDERMAL
  356. SULFASALAZINE [Concomitant]
     Active Substance: SULFASALAZINE
  357. SULFASALAZINE [Concomitant]
     Active Substance: SULFASALAZINE
  358. SULFASALAZINE [Concomitant]
     Active Substance: SULFASALAZINE
  359. SULFASALAZINE [Concomitant]
     Active Substance: SULFASALAZINE
  360. SULFASALAZINE [Concomitant]
     Active Substance: SULFASALAZINE
  361. SULFASALAZINE [Concomitant]
     Active Substance: SULFASALAZINE
     Dosage: SUBDERMAL
  362. SULFASALAZINE [Concomitant]
     Active Substance: SULFASALAZINE
  363. SULFASALAZINE [Concomitant]
     Active Substance: SULFASALAZINE
  364. SULFASALAZINE [Concomitant]
     Active Substance: SULFASALAZINE
  365. SULFASALAZINE [Concomitant]
     Active Substance: SULFASALAZINE
  366. TOCILIZUMAB [Concomitant]
     Active Substance: TOCILIZUMAB
     Indication: Rheumatoid arthritis
  367. TOCILIZUMAB [Concomitant]
     Active Substance: TOCILIZUMAB
  368. TOCILIZUMAB [Concomitant]
     Active Substance: TOCILIZUMAB
     Dosage: SUBDERMAL
  369. TOCILIZUMAB [Concomitant]
     Active Substance: TOCILIZUMAB
     Dosage: SUBDERMAL
  370. TOCILIZUMAB [Concomitant]
     Active Substance: TOCILIZUMAB
  371. TOCILIZUMAB [Concomitant]
     Active Substance: TOCILIZUMAB
     Dosage: SUBDERMAL
  372. TOCILIZUMAB [Concomitant]
     Active Substance: TOCILIZUMAB
  373. TOCILIZUMAB [Concomitant]
     Active Substance: TOCILIZUMAB
     Dosage: SUBDERMAL
  374. TOCILIZUMAB [Concomitant]
     Active Substance: TOCILIZUMAB
  375. TOCILIZUMAB [Concomitant]
     Active Substance: TOCILIZUMAB
  376. TOCILIZUMAB [Concomitant]
     Active Substance: TOCILIZUMAB
  377. TOCILIZUMAB [Concomitant]
     Active Substance: TOCILIZUMAB
  378. TOCILIZUMAB [Concomitant]
     Active Substance: TOCILIZUMAB
     Dosage: SUBDERMAL
  379. TOCILIZUMAB [Concomitant]
     Active Substance: TOCILIZUMAB
  380. TOFACITINIB CITRATE [Concomitant]
     Active Substance: TOFACITINIB CITRATE
     Indication: Rheumatoid arthritis
  381. USTEKINUMAB [Concomitant]
     Active Substance: USTEKINUMAB
     Indication: Rheumatoid arthritis
     Dosage: SUBDERMAL
  382. USTEKINUMAB [Concomitant]
     Active Substance: USTEKINUMAB
  383. VITAMIN D3 [Concomitant]
     Active Substance: CHOLECALCIFEROL
     Indication: Rheumatoid arthritis
  384. DICLOFENAC [Concomitant]
     Active Substance: DICLOFENAC
     Indication: Rheumatoid arthritis
  385. DICLOFENAC [Concomitant]
     Active Substance: DICLOFENAC
     Indication: Psoriatic arthropathy
  386. DICLOFENAC [Concomitant]
     Active Substance: DICLOFENAC
  387. DICLOFENAC [Concomitant]
     Active Substance: DICLOFENAC
  388. DICLOFENAC [Concomitant]
     Active Substance: DICLOFENAC
  389. DICLOFENAC [Concomitant]
     Active Substance: DICLOFENAC
  390. DICLOFENAC [Concomitant]
     Active Substance: DICLOFENAC
  391. DICLOFENAC [Concomitant]
     Active Substance: DICLOFENAC
  392. DICLOFENAC [Concomitant]
     Active Substance: DICLOFENAC
  393. DICLOFENAC [Concomitant]
     Active Substance: DICLOFENAC
  394. DICLOFENAC [Concomitant]
     Active Substance: DICLOFENAC
     Dosage: SUBDERMAL
  395. DICLOFENAC [Concomitant]
     Active Substance: DICLOFENAC
  396. PREDNISONE [Concomitant]
     Active Substance: PREDNISONE
     Indication: Rheumatoid arthritis
  397. PREDNISONE [Concomitant]
     Active Substance: PREDNISONE
  398. XELJANZ [Concomitant]
     Active Substance: TOFACITINIB CITRATE
     Indication: Rheumatoid arthritis
  399. XELJANZ [Concomitant]
     Active Substance: TOFACITINIB CITRATE
  400. XELJANZ [Concomitant]
     Active Substance: TOFACITINIB CITRATE
  401. XELJANZ [Concomitant]
     Active Substance: TOFACITINIB CITRATE
  402. XELJANZ [Concomitant]
     Active Substance: TOFACITINIB CITRATE
  403. XELJANZ [Concomitant]
     Active Substance: TOFACITINIB CITRATE
  404. XELJANZ [Concomitant]
     Active Substance: TOFACITINIB CITRATE
  405. XELJANZ [Concomitant]
     Active Substance: TOFACITINIB CITRATE
  406. XELJANZ [Concomitant]
     Active Substance: TOFACITINIB CITRATE
  407. XELJANZ [Concomitant]
     Active Substance: TOFACITINIB CITRATE
  408. XELJANZ [Concomitant]
     Active Substance: TOFACITINIB CITRATE
  409. XELJANZ [Concomitant]
     Active Substance: TOFACITINIB CITRATE
  410. TOFACITINIB [Concomitant]
     Active Substance: TOFACITINIB
     Indication: Rheumatoid arthritis
  411. PREDNISOLONE [Concomitant]
     Active Substance: PREDNISOLONE
     Indication: Product used for unknown indication

REACTIONS (51)
  - Adverse event [Unknown]
  - Hospitalisation [Unknown]
  - Abdominal discomfort [Unknown]
  - Alopecia [Unknown]
  - Anti-cyclic citrullinated peptide antibody positive [Unknown]
  - Arthropathy [Unknown]
  - Autoimmune disorder [Unknown]
  - Blepharospasm [Unknown]
  - Blister [Unknown]
  - Breast cancer stage III [Unknown]
  - Colitis ulcerative [Unknown]
  - Condition aggravated [Unknown]
  - Contraindicated product administered [Unknown]
  - Crohn^s disease [Unknown]
  - Decreased appetite [Unknown]
  - Deep vein thrombosis postoperative [Unknown]
  - Depression [Unknown]
  - Discomfort [Unknown]
  - Dizziness [Unknown]
  - Drug ineffective [Unknown]
  - Drug intolerance [Unknown]
  - Drug-induced liver injury [Unknown]
  - Duodenal ulcer perforation [Unknown]
  - Dyspepsia [Unknown]
  - Dyspnoea [Unknown]
  - Ear infection [Unknown]
  - Epilepsy [Unknown]
  - Exostosis [Unknown]
  - Fatigue [Unknown]
  - Fibromyalgia [Unknown]
  - Folliculitis [Unknown]
  - Foot deformity [Unknown]
  - Gait disturbance [Unknown]
  - Gait inability [Unknown]
  - General physical health deterioration [Unknown]
  - Glossodynia [Unknown]
  - Grip strength decreased [Unknown]
  - Hand deformity [Unknown]
  - Headache [Unknown]
  - Helicobacter infection [Unknown]
  - Hepatic cirrhosis [Unknown]
  - Hepatic enzyme increased [Unknown]
  - Hypercholesterolaemia [Unknown]
  - Hypersensitivity [Unknown]
  - Hypertension [Unknown]
  - Hypoaesthesia [Unknown]
  - Ill-defined disorder [Unknown]
  - Impaired healing [Unknown]
  - Incorrect route of product administration [Unknown]
  - Infection [Unknown]
  - Disability [Unknown]
